FAERS Safety Report 16003886 (Version 1)
Quarter: 2019Q1

REPORT INFORMATION
  Report Type: Spontaneous
  Country: US (occurrence: US)
  Receive Date: 20190226
  Receipt Date: 20190226
  Transmission Date: 20190418
  Serious: No
  Sender: FDA-Public Use
  Company Number: US-ASTRAZENECA-2019SE19931

PATIENT
  Sex: Female
  Weight: 45.4 kg

DRUGS (1)
  1. SYMBICORT [Suspect]
     Active Substance: BUDESONIDE\FORMOTEROL FUMARATE DIHYDRATE
     Dosage: 80/4.5 MCG, TWO PUFFS, TWICE DAILY,
     Route: 055

REACTIONS (6)
  - Underdose [Unknown]
  - Product residue present [Unknown]
  - Cough [Unknown]
  - Condition aggravated [Unknown]
  - Device malfunction [Unknown]
  - Intentional device misuse [Unknown]
